FAERS Safety Report 13109349 (Version 1)
Quarter: 2017Q1

REPORT INFORMATION
  Report Type: Spontaneous
  Country: CN (occurrence: CN)
  Receive Date: 20170112
  Receipt Date: 20170112
  Transmission Date: 20170428
  Serious: Yes (Hospitalization)
  Sender: FDA-Public Use
  Company Number: CN-BAYER-2017-006438

PATIENT
  Age: 85 Year
  Sex: Male
  Weight: 58 kg

DRUGS (2)
  1. BAYASPIRIN 100 MG [Suspect]
     Active Substance: ASPIRIN
     Indication: CORONARY ARTERY DISEASE
     Dosage: 0.1 G, QD
     Route: 048
     Dates: start: 20160617, end: 20161030
  2. WARFARIN SODIUM. [Suspect]
     Active Substance: WARFARIN SODIUM
     Indication: CORONARY ARTERY DISEASE
     Dosage: 2.5 MG, QD
     Route: 048
     Dates: start: 20160617, end: 20161030

REACTIONS (1)
  - Thrombocytopenia [Unknown]

NARRATIVE: CASE EVENT DATE: 20161031
